FAERS Safety Report 6044699-5 (Version None)
Quarter: 2009Q1

REPORT INFORMATION
  Report Type: 
  Country: None (occurrence: None)
  Receive Date: 20090120
  Receipt Date: 20090108
  Transmission Date: 20090719
  Serious: Yes (Hospitalization)
  Sender: FDA-Public Use
  Company Number: IN-ROXANE LABORATORIES, INC.-2009-RO-00033RO

PATIENT
  Age: 49 Year
  Sex: Female

DRUGS (4)
  1. CYCLOPHOSPHAMIDE [Suspect]
     Indication: INTERSTITIAL LUNG DISEASE
     Route: 042
  2. PREDNISOLONE [Suspect]
     Indication: INTERSTITIAL LUNG DISEASE
     Dosage: 20MG
     Route: 048
  3. SODIUM CHLORIDE [Concomitant]
     Indication: HYPONATRAEMIA
     Route: 042
  4. HYPERTONIC SALINE [Concomitant]
     Indication: HYPONATRAEMIA
     Route: 042

REACTIONS (8)
  - CENTRAL PONTINE MYELINOLYSIS [None]
  - COMA [None]
  - DEPRESSED LEVEL OF CONSCIOUSNESS [None]
  - FATIGUE [None]
  - GRAND MAL CONVULSION [None]
  - HYPONATRAEMIA [None]
  - INAPPROPRIATE ANTIDIURETIC HORMONE SECRETION [None]
  - RESTLESSNESS [None]
